FAERS Safety Report 5678247-6 (Version None)
Quarter: 2008Q1

REPORT INFORMATION
  Report Type: 
  Country: None (occurrence: None)
  Receive Date: 20080319
  Receipt Date: 20080311
  Transmission Date: 20080703
  Serious: Yes (Hospitalization)
  Sender: FDA-Public Use
  Company Number: 008-C5013-08010106

PATIENT
  Age: 58 Year
  Sex: Male

DRUGS (3)
  1. CC-5013 (LENALIDOMIDE) (CAPSULES) [Suspect]
     Indication: MULTIPLE MYELOMA
     Dosage: CYCLE 6, ORAL
     Route: 048
     Dates: start: 20071212, end: 20080101
  2. DEXAMETHASONE TAB [Suspect]
     Indication: MULTIPLE MYELOMA
     Dosage: CYCLE 6 DAYS 1-4, ORAL
     Route: 048
     Dates: start: 20071212, end: 20071215
  3. PACK CELL (RED BLOOD CELLS, CONCENTRATED) [Concomitant]

REACTIONS (17)
  - ABDOMINAL DISTENSION [None]
  - BLOOD CULTURE POSITIVE [None]
  - BLOOD DISORDER [None]
  - BLOOD PRESSURE DECREASED [None]
  - BLOOD PRESSURE DIASTOLIC DECREASED [None]
  - BODY TEMPERATURE INCREASED [None]
  - BRONCHIOLITIS [None]
  - HAEMOGLOBIN DECREASED [None]
  - MONOCLONAL IMMUNOGLOBULIN PRESENT [None]
  - NEUTROPENIA [None]
  - OXYGEN SATURATION DECREASED [None]
  - PLATELET COUNT DECREASED [None]
  - PNEUMONIA [None]
  - SPUTUM DISCOLOURED [None]
  - STAPHYLOCOCCAL INFECTION [None]
  - WEIGHT INCREASED [None]
  - WHITE BLOOD CELL COUNT DECREASED [None]
